FAERS Safety Report 22621271 (Version 2)
Quarter: 2025Q1

REPORT INFORMATION
  Report Type: Spontaneous
  Country: ZA (occurrence: ZA)
  Receive Date: 20230620
  Receipt Date: 20250319
  Transmission Date: 20250409
  Serious: Yes (Hospitalization)
  Sender: PFIZER
  Company Number: ZA-PFIZER INC-202300223455

PATIENT
  Age: 55 Year
  Sex: Female

DRUGS (8)
  1. MEDROL [Suspect]
     Active Substance: METHYLPREDNISOLONE
     Dosage: 4 MG, ALTERNATE DAY
     Dates: start: 202004
  2. VIMOVO [Suspect]
     Active Substance: ESOMEPRAZOLE MAGNESIUM\NAPROXEN
     Dosage: 1 MG, 2X/DAY
     Dates: start: 201702
  3. ACETAMINOPHEN\TRAMADOL HYDROCHLORIDE [Suspect]
     Active Substance: ACETAMINOPHEN\TRAMADOL HYDROCHLORIDE
     Dates: start: 201712
  4. LEFLUNOMIDE [Suspect]
     Active Substance: LEFLUNOMIDE
     Dosage: 20 MG, DAILY
     Dates: start: 202205
  5. METHOTREXATE SODIUM [Concomitant]
     Active Substance: METHOTREXATE SODIUM
     Dosage: 25 MG, WEEKLY
     Dates: start: 201709, end: 202006
  6. CHLOROQUINE [Concomitant]
     Active Substance: CHLOROQUINE
     Dosage: 1 MG, DAILY
     Dates: start: 202004, end: 202205
  7. PREDNISONE [Concomitant]
     Active Substance: PREDNISONE
     Dosage: 5 MG, DAILY
     Dates: start: 201711, end: 201802
  8. SULFASALAZINE [Concomitant]
     Active Substance: SULFASALAZINE
     Dates: start: 201702, end: 202004

REACTIONS (10)
  - Blood glucose increased [Unknown]
  - Blood urea decreased [Recovered/Resolved]
  - Protein total decreased [Unknown]
  - White blood cell count decreased [Recovered/Resolved]
  - Lymphocyte count increased [Recovered/Resolved]
  - Blood albumin decreased [Recovered/Resolved]
  - Blood potassium decreased [Unknown]
  - Neutrophil count decreased [Unknown]
  - Rheumatoid arthritis [Unknown]
  - Off label use [Unknown]

NARRATIVE: CASE EVENT DATE: 20200401
